FAERS Safety Report 8383879-0 (Version None)
Quarter: 2012Q2

REPORT INFORMATION
  Report Type: 
  Country: None (occurrence: None)
  Receive Date: 20120524
  Receipt Date: 20120430
  Transmission Date: 20120825
  Serious: Yes (Other)
  Sender: FDA-Public Use
  Company Number: US-ROCHE-1055416

PATIENT
  Sex: Female
  Weight: 74.54 kg

DRUGS (7)
  1. SINGULAIR [Concomitant]
  2. SPIRIVA [Concomitant]
  3. ALBUTEROL [Concomitant]
  4. XYZAL [Concomitant]
  5. COMBIVENT [Concomitant]
  6. OMALIZUMAB [Suspect]
     Indication: ASTHMA
     Route: 030
     Dates: start: 20120220
  7. DULERA [Concomitant]

REACTIONS (1)
  - ASTHMA [None]
